FAERS Safety Report 5474026-3 (Version None)
Quarter: 2007Q4

REPORT INFORMATION
  Report Type: 
  Country: None (occurrence: None)
  Receive Date: 20071002
  Receipt Date: 20070921
  Transmission Date: 20080405
  Serious: Yes (Hospitalization)
  Sender: FDA-Public Use
  Company Number: PHBS2007JP15286

PATIENT
  Sex: Female

DRUGS (1)
  1. ZADITEN [Suspect]
     Indication: ASTHMA
     Dosage: 2 MG/DAY
     Route: 048

REACTIONS (1)
  - CYSTITIS HAEMORRHAGIC [None]
